FAERS Safety Report 8175141 (Version 2)
Quarter: 2012Q4

REPORT INFORMATION
  Report Type: 
  Country: US (occurrence: US)
  Receive Date: 20111011
  Receipt Date: 20121001
  Transmission Date: 20130627
  Serious: Yes (Hospitalization)
  Sender: FDA-Public Use
  Company Number: US-US-EMD SERONO, INC.-7086756

PATIENT
  Age: 57 None
  Sex: Female

DRUGS (5)
  1. REBIF [Suspect]
     Indication: MULTIPLE SCLEROSIS
     Route: 058
     Dates: start: 20101004
  2. VITAMIN D [Concomitant]
     Indication: PRODUCT USED FOR UNKNOWN INDICATION
  3. CALCIUM [Concomitant]
     Indication: PRODUCT USED FOR UNKNOWN INDICATION
  4. VITAMIN B12 [Concomitant]
     Indication: MULTIPLE SCLEROSIS
  5. CRANBERRY EXTRACT [Concomitant]
     Indication: URINARY TRACT INFECTION

REACTIONS (4)
  - Appendicitis [Recovered/Resolved]
  - Snoring [Unknown]
  - Liver function test abnormal [Recovering/Resolving]
  - Injection site erythema [Not Recovered/Not Resolved]
